FAERS Safety Report 12633022 (Version 2)
Quarter: 2016Q3

REPORT INFORMATION
  Report Type: Spontaneous
  Country: US (occurrence: US)
  Receive Date: 20160808
  Receipt Date: 20160808
  Transmission Date: 20161109
  Serious: No
  Sender: FDA-Public Use
  Company Number: US-BEH-2016058158

PATIENT
  Sex: Female
  Weight: 72 kg

DRUGS (17)
  1. HIZENTRA [Suspect]
     Active Substance: HUMAN IMMUNOGLOBULIN G
     Indication: IMMUNODEFICIENCY COMMON VARIABLE
     Route: 058
     Dates: start: 20130129
  2. CALCIUM [Concomitant]
     Active Substance: CALCIUM
  3. MULTIVITAMIN [Concomitant]
     Active Substance: VITAMINS
  4. DICLOFENAC [Concomitant]
     Active Substance: DICLOFENAC
  5. MUCINEX [Concomitant]
     Active Substance: GUAIFENESIN
  6. BENAZEPRIL [Concomitant]
     Active Substance: BENAZEPRIL HYDROCHLORIDE
  7. DIPHENHYDRAMINE. [Concomitant]
     Active Substance: DIPHENHYDRAMINE
  8. EPIPEN [Concomitant]
     Active Substance: EPINEPHRINE
  9. VITAMIN C [Concomitant]
     Active Substance: ASCORBIC ACID
  10. ALLEGRA [Concomitant]
     Active Substance: FEXOFENADINE HYDROCHLORIDE
  11. TYLENOL [Concomitant]
     Active Substance: ACETAMINOPHEN
  12. LMX [Concomitant]
     Active Substance: LIDOCAINE
  13. MELATONIN [Concomitant]
     Active Substance: MELATONIN
  14. SIMVASTATIN. [Concomitant]
     Active Substance: SIMVASTATIN
  15. PROAIR HFA [Concomitant]
     Active Substance: ALBUTEROL SULFATE
  16. TRAMADOL. [Concomitant]
     Active Substance: TRAMADOL
  17. SINGULAIR [Concomitant]
     Active Substance: MONTELUKAST SODIUM

REACTIONS (2)
  - Drug administration error [Unknown]
  - Contusion [Unknown]
